FAERS Safety Report 4619532-6 (Version None)
Quarter: 2005Q2

REPORT INFORMATION
  Report Type: 
  Country: None (occurrence: None)
  Receive Date: 20050321
  Receipt Date: 20040719
  Transmission Date: 20051028
  Serious: Yes (Hospitalization)
  Sender: FDA-Public Use
  Company Number: 2004-07-1135

PATIENT
  Age: 46 Year
  Sex: Female
  Weight: 83.0083 kg

DRUGS (4)
  1. PEG-INTRON [Suspect]
     Indication: HEPATITIS C
     Dosage: 150 MCG QW SUBCUTANEOUS
     Route: 058
     Dates: start: 20040201, end: 20040715
  2. RIBAVIRIN [Suspect]
     Indication: HEPATITIS C
     Dosage: 1200 MG QD ORAL
     Route: 048
     Dates: start: 20040201, end: 20040715
  3. PROCRIT [Concomitant]
  4. WELLBUTRIN [Concomitant]

REACTIONS (1)
  - PANCREATITIS ACUTE [None]
